FAERS Safety Report 5751759-2 (Version None)
Quarter: 2008Q2

REPORT INFORMATION
  Report Type: 
  Country: None (occurrence: None)
  Receive Date: 20080529
  Receipt Date: 20080519
  Transmission Date: 20081010
  Serious: Yes (Other)
  Sender: FDA-Public Use
  Company Number: US-JNJFOC-20080504288

PATIENT
  Sex: Female

DRUGS (1)
  1. DURAGESIC-100 [Suspect]
     Indication: PAIN
     Dosage: 1000  + 50
     Route: 062

REACTIONS (7)
  - DIARRHOEA [None]
  - DRUG DOSE OMISSION [None]
  - HEPATIC CIRRHOSIS [None]
  - IRRITABILITY [None]
  - PAIN [None]
  - PANCREATIC CARCINOMA [None]
  - VOMITING [None]
